FAERS Safety Report 19044113 (Version 1)
Quarter: 2021Q1

REPORT INFORMATION
  Report Type: Spontaneous
  Country: US (occurrence: US)
  Receive Date: 20210322
  Receipt Date: 20210322
  Transmission Date: 20210420
  Serious: Yes (Life-Threatening, Hospitalization)
  Sender: FDA-Public Use
  Company Number: None

PATIENT
  Age: 36 Year
  Sex: Female
  Weight: 96 kg

DRUGS (1)
  1. ISOSULFAN BLUE/POTASSIUM PHOSPHATE/SODIUM PHOSPHATE (ISOSULFAN BLUE 1% [Suspect]
     Active Substance: ISOSULFAN BLUE
     Indication: SURGERY
     Route: 058
     Dates: start: 20210317, end: 20210317

REACTIONS (3)
  - Anaphylactic reaction [None]
  - Hypotension [None]
  - Tachycardia [None]

NARRATIVE: CASE EVENT DATE: 20210317
